FAERS Safety Report 23837998 (Version 1)
Quarter: 2024Q2

REPORT INFORMATION
  Report Type: Spontaneous
  Country: FI (occurrence: FI)
  Receive Date: 20240509
  Receipt Date: 20240509
  Transmission Date: 20240716
  Serious: Yes (Other)
  Sender: FDA-Public Use
  Company Number: FI-JNJFOC-20240508609

PATIENT
  Age: 26 Year
  Sex: Female

DRUGS (2)
  1. CONCERTA [Suspect]
     Active Substance: METHYLPHENIDATE HYDROCHLORIDE
     Indication: Attention deficit hyperactivity disorder
     Route: 042
  2. POVIDONE [Concomitant]
     Active Substance: POVIDONE

REACTIONS (3)
  - Histiocytosis [Recovering/Resolving]
  - Intentional product misuse [Unknown]
  - Intentional product use issue [Unknown]
